FAERS Safety Report 6587642-2 (Version None)
Quarter: 2010Q1

REPORT INFORMATION
  Report Type: 
  Country: None (occurrence: None)
  Receive Date: 20100218
  Receipt Date: 20100204
  Transmission Date: 20100710
  Serious: Yes (Hospitalization)
  Sender: FDA-Public Use
  Company Number: US-ELI_LILLY_AND_COMPANY-US201002002402

PATIENT
  Age: 37 Year
  Sex: Female

DRUGS (1)
  1. EFFIENT [Suspect]
     Indication: STENT PLACEMENT

REACTIONS (1)
  - THERMAL BURN [None]
